FAERS Safety Report 24675967 (Version 1)
Quarter: 2024Q4

REPORT INFORMATION
  Report Type: Spontaneous
  Country: US (occurrence: US)
  Receive Date: 20241128
  Receipt Date: 20241128
  Transmission Date: 20250115
  Serious: Yes (Hospitalization, Other)
  Sender: NOVARTIS
  Company Number: US-002147023-NVSC2024US225795

PATIENT
  Age: 75 Year
  Sex: Male

DRUGS (2)
  1. LEQVIO [Suspect]
     Active Substance: INCLISIRAN SODIUM
     Indication: Blood cholesterol increased
     Dosage: UNK (1ST INJECTION)
     Route: 065
     Dates: start: 20240812
  2. LEQVIO [Suspect]
     Active Substance: INCLISIRAN SODIUM
     Dosage: UNK (2ND INJECTION)
     Route: 065
     Dates: start: 20241112

REACTIONS (5)
  - Dizziness [Unknown]
  - Loss of consciousness [Unknown]
  - Craniofacial fracture [Unknown]
  - Eye injury [Unknown]
  - Eye contusion [Unknown]

NARRATIVE: CASE EVENT DATE: 20241116
